FAERS Safety Report 6031855-5 (Version None)
Quarter: 2009Q1

REPORT INFORMATION
  Report Type: 
  Country: None (occurrence: None)
  Receive Date: 20090108
  Receipt Date: 20081230
  Transmission Date: 20090719
  Serious: Yes (Other)
  Sender: FDA-Public Use
  Company Number: US-PFIZER INC-2009150531

PATIENT
  Sex: Female
  Weight: 45.4 kg

DRUGS (2)
  1. GLIPIZIDE [Suspect]
     Indication: DIABETES MELLITUS
     Dosage: 5 MG, 1X/DAY
     Route: 048
  2. GLIPIZIDE [Suspect]
     Dosage: 2.5 MG, UNK
     Dates: start: 20070101

REACTIONS (3)
  - BLOOD GLUCOSE ABNORMAL [None]
  - DEMENTIA ALZHEIMER'S TYPE [None]
  - OSTEOPOROSIS [None]
